FAERS Safety Report 8425327-8 (Version None)
Quarter: 2012Q2

REPORT INFORMATION
  Report Type: 
  Country: None (occurrence: None)
  Receive Date: 20120605
  Receipt Date: 20120605
  Transmission Date: 20120825
  Serious: Yes (Hospitalization)
  Sender: FDA-Public Use
  Company Number: None

PATIENT
  Age: 64 Year
  Sex: Female
  Weight: 91.1 kg

DRUGS (1)
  1. ISOVUE-370 [Suspect]
     Indication: DIAGNOSTIC PROCEDURE
     Dates: start: 20120530, end: 20120530

REACTIONS (2)
  - URTICARIA [None]
  - SWELLING [None]
